FAERS Safety Report 7369191-7 (Version None)
Quarter: 2011Q1

REPORT INFORMATION
  Report Type: 
  Country: None (occurrence: None)
  Receive Date: 20110323
  Receipt Date: 20110317
  Transmission Date: 20110831
  Serious: Yes (Hospitalization)
  Sender: FDA-Public Use
  Company Number: US-SANOFI-AVENTIS-2011SA006679

PATIENT
  Age: 56 Year
  Sex: Male
  Weight: 43.54 kg

DRUGS (9)
  1. LASIX [Concomitant]
     Dates: start: 20091011
  2. LANTUS [Suspect]
     Indication: TYPE 2 DIABETES MELLITUS
     Dosage: 18 TO 20 UNITS
     Route: 058
     Dates: start: 20100820
  3. ASPIRIN [Concomitant]
     Dates: start: 20091011
  4. GLYBURIDE [Suspect]
     Route: 065
  5. NOVOLOG [Suspect]
     Indication: BLOOD GLUCOSE
     Dosage: SLIDING SCALE
     Route: 065
     Dates: start: 20100820
  6. SOLOSTAR [Suspect]
     Indication: TYPE 2 DIABETES MELLITUS
  7. JANUVIA [Suspect]
     Route: 065
  8. PLAVIX [Concomitant]
     Dates: start: 20100820
  9. ACTOS [Suspect]
     Route: 065

REACTIONS (7)
  - HYPERHIDROSIS [None]
  - HEADACHE [None]
  - BLOOD GLUCOSE DECREASED [None]
  - INFECTED SKIN ULCER [None]
  - TREMOR [None]
  - HEART RATE INCREASED [None]
  - BALANCE DISORDER [None]
